FAERS Safety Report 6339556-0 (Version None)
Quarter: 2009Q3

REPORT INFORMATION
  Report Type: 
  Country: None (occurrence: None)
  Receive Date: 20090903
  Receipt Date: 20090901
  Transmission Date: 20100115
  Serious: Yes (Life-Threatening, Other)
  Sender: FDA-Public Use
  Company Number: IE-BAYER-200912754BNE

PATIENT
  Age: 59 Year
  Sex: Male
  Weight: 89 kg

DRUGS (8)
  1. NEXAVAR [Suspect]
     Indication: RENAL CELL CARCINOMA
     Route: 048
     Dates: start: 20090410, end: 20090703
  2. CLOPIDOGREL [Concomitant]
     Dosage: TOTAL DAILY DOSE: 75 MG
     Route: 048
  3. ESOMEPRAZOLE [Concomitant]
     Dosage: TOTAL DAILY DOSE: 40 MG
     Route: 048
  4. ATORVASTATIN [Concomitant]
     Dosage: TOTAL DAILY DOSE: 40 MG
     Route: 048
  5. RAMIPRIL [Concomitant]
     Dosage: TOTAL DAILY DOSE: 2.5 MG
     Route: 048
  6. BISOPROLOL [Concomitant]
     Dosage: TOTAL DAILY DOSE: 2.5 MG
     Route: 048
  7. OMNEXEL [Concomitant]
     Dosage: AS USED: 400 ?G
     Route: 048
  8. ASPIRIN [Concomitant]
     Dosage: TOTAL DAILY DOSE: 300 MG
     Route: 048

REACTIONS (4)
  - ANGINA PECTORIS [None]
  - CARDIOVASCULAR DISORDER [None]
  - CORONARY ARTERIAL STENT INSERTION [None]
  - IN-STENT CORONARY ARTERY RESTENOSIS [None]
